FAERS Safety Report 10992408 (Version 5)
Quarter: 2017Q2

REPORT INFORMATION
  Report Type: Report from Study
  Country: BR (occurrence: BR)
  Receive Date: 20150406
  Receipt Date: 20170524
  Transmission Date: 20170829
  Serious: Yes (Hospitalization, Other)
  Sender: FDA-Public Use
  Company Number: PHHY2015BR040316

PATIENT
  Age: 58 Year
  Sex: Female
  Weight: 41 kg

DRUGS (6)
  1. ACLASTA [Suspect]
     Active Substance: ZOLEDRONIC ACID
     Indication: OSTEOPOROSIS
     Dosage: 1 DF (5 MG/100ML), Q12MO
     Route: 042
  2. GLIFAGE [Concomitant]
     Active Substance: METFORMIN HYDROCHLORIDE
     Indication: DIABETES MELLITUS
     Dosage: 1 DF, QD (2 YEARS AGO)
     Route: 048
  3. HYDROCHLOROTHIAZIDE. [Concomitant]
     Active Substance: HYDROCHLOROTHIAZIDE
     Indication: HYPERTENSION
     Dosage: 1 DF, QD (10 YEARS AGO)
     Route: 048
  4. TORLOS [Concomitant]
     Indication: HYPERTENSION
     Dosage: 1 DF, QD (10 YEARS AGO)
     Route: 048
  5. PROPRANOLOL [Concomitant]
     Active Substance: PROPRANOLOL HYDROCHLORIDE
     Indication: HYPERTENSION
     Dosage: 2 DF, QD (10 YEARS AGO)
     Route: 048
  6. VASOPRIL//ENALAPRIL MALEATE [Concomitant]
     Indication: HYPERTENSION
     Dosage: 1 DF, QD (10 YEARS AGO)
     Route: 048

REACTIONS (11)
  - Multiple fractures [Recovered/Resolved]
  - Spinal cord disorder [Unknown]
  - Upper limb fracture [Unknown]
  - Rib fracture [Unknown]
  - Weight decreased [Unknown]
  - Device failure [Recovering/Resolving]
  - Osteoporotic fracture [Recovering/Resolving]
  - Fall [Unknown]
  - Blood glucose increased [Recovering/Resolving]
  - Lower limb fracture [Recovering/Resolving]
  - Hypokinesia [Recovering/Resolving]

NARRATIVE: CASE EVENT DATE: 201409
